FAERS Safety Report 5946830-6 (Version None)
Quarter: 2008Q4

REPORT INFORMATION
  Report Type: 
  Country: None (occurrence: None)
  Receive Date: 20081110
  Receipt Date: 20081105
  Transmission Date: 20090506
  Serious: Yes (Death)
  Sender: FDA-Public Use
  Company Number: US-JNJFOC-20081101768

PATIENT
  Sex: Male

DRUGS (3)
  1. RISPERDAL [Suspect]
     Indication: SCHIZOAFFECTIVE DISORDER
     Route: 030
  2. BENADRYL [Concomitant]
     Route: 065
  3. LEXAPRO [Concomitant]
     Route: 065

REACTIONS (1)
  - THROMBOSIS [None]
